FAERS Safety Report 4738014-4 (Version None)
Quarter: 2005Q3

REPORT INFORMATION
  Report Type: 
  Country: None (occurrence: None)
  Receive Date: 20050805
  Receipt Date: 20050801
  Transmission Date: 20060218
  Serious: Yes (Life-Threatening, Other)
  Sender: FDA-Public Use
  Company Number: UKP05000270

PATIENT
  Age: 25 Year
  Sex: Male
  Weight: 65 kg

DRUGS (4)
  1. ASACOL [Suspect]
     Indication: INFLAMMATORY BOWEL DISEASE
     Dosage: 800 MG, ORAL
     Route: 048
     Dates: start: 20050613, end: 20050704
  2. ASACOL [Suspect]
     Indication: INFLAMMATORY BOWEL DISEASE
     Dosage: 1 G, RECTAL
     Route: 054
  3. PREDNISONE [Concomitant]
  4. PREDFOAM (PREDNISOLONE SODIUM  SULFOBENZOATE) [Concomitant]

REACTIONS (3)
  - MYOCARDITIS [None]
  - SINUS TACHYCARDIA [None]
  - VENTRICULAR DYSFUNCTION [None]
